FAERS Safety Report 10392866 (Version 6)
Quarter: 2017Q2

REPORT INFORMATION
  Report Type: Spontaneous
  Country: US (occurrence: US)
  Receive Date: 20140819
  Receipt Date: 20170525
  Transmission Date: 20170829
  Serious: Yes (Hospitalization, Other)
  Sender: FDA-Public Use
  Company Number: US-009507513-1408USA005671

PATIENT
  Sex: Female

DRUGS (3)
  1. ALENDRONATE SODIUM. [Suspect]
     Active Substance: ALENDRONATE SODIUM
     Indication: OSTEOPOROSIS
     Dosage: 70 MG, QW
     Route: 048
     Dates: start: 20080514, end: 2012
  2. FOSAMAX [Suspect]
     Active Substance: ALENDRONATE SODIUM
     Indication: OSTEOPOROSIS
     Dosage: 70 MG, QW
     Route: 048
     Dates: start: 20061129, end: 20080122
  3. FOSAMAX PLUS D [Suspect]
     Active Substance: ALENDRONATE SODIUM\CHOLECALCIFEROL
     Indication: OSTEOPOROSIS
     Dosage: 70-2800 TAB, QW
     Route: 048
     Dates: start: 20080122, end: 20080514

REACTIONS (32)
  - Shoulder operation [Unknown]
  - Blood cholesterol increased [Unknown]
  - Arthralgia [Unknown]
  - Myositis [Unknown]
  - Vitamin D deficiency [Unknown]
  - Hypothyroidism [Unknown]
  - Hyperlipidaemia [Unknown]
  - Osteoporosis [Unknown]
  - Calcium deficiency [Unknown]
  - Polyp [Unknown]
  - Dyslipidaemia [Unknown]
  - Fracture delayed union [Recovering/Resolving]
  - Foot fracture [Unknown]
  - Constipation [Unknown]
  - Ankle fracture [Unknown]
  - Back pain [Not Recovered/Not Resolved]
  - Myalgia [Unknown]
  - Diabetic neuropathy [Unknown]
  - Fall [Unknown]
  - Cardiomyopathy [Unknown]
  - Abdominal pain [Unknown]
  - Gastrooesophageal reflux disease [Unknown]
  - Irritable bowel syndrome [Unknown]
  - Blood sodium abnormal [Unknown]
  - Femur fracture [Recovering/Resolving]
  - Pelvic pain [Unknown]
  - Anaemia postoperative [Unknown]
  - Ankle fracture [Unknown]
  - Osteoarthritis [Unknown]
  - Pain in extremity [Unknown]
  - Pain in extremity [Unknown]
  - Atrophic vulvovaginitis [Unknown]

NARRATIVE: CASE EVENT DATE: 2006
